FAERS Safety Report 13762010 (Version 1)
Quarter: 2017Q3

REPORT INFORMATION
  Report Type: Spontaneous
  Country: US (occurrence: US)
  Receive Date: 20170717
  Receipt Date: 20170717
  Transmission Date: 20171127
  Serious: No
  Sender: FDA-Public Use
  Company Number: None

PATIENT
  Age: 26 Year
  Sex: Female

DRUGS (1)
  1. HUMIRA [Suspect]
     Active Substance: ADALIMUMAB
     Indication: PSORIASIS
     Route: 058
     Dates: start: 20161110, end: 20170514

REACTIONS (3)
  - Herpes zoster [None]
  - Influenza like illness [None]
  - Meningitis viral [None]

NARRATIVE: CASE EVENT DATE: 20170417
